FAERS Safety Report 13619517 (Version 2)
Quarter: 2017Q2

REPORT INFORMATION
  Report Type: Spontaneous
  Country: US (occurrence: US)
  Receive Date: 20170606
  Receipt Date: 20170607
  Transmission Date: 20170830
  Serious: No
  Sender: FDA-Public Use
  Company Number: US-PURDUE-USA-2016-0132531

PATIENT
  Age: 58 Year
  Sex: Male

DRUGS (1)
  1. BUTRANS [Suspect]
     Active Substance: BUPRENORPHINE
     Indication: PAIN
     Dosage: 20 MCG/HR, WEEKLY
     Route: 062
     Dates: start: 201406

REACTIONS (5)
  - Pain [Recovering/Resolving]
  - Nausea [Recovering/Resolving]
  - Drug effect decreased [Recovering/Resolving]
  - Withdrawal syndrome [Recovering/Resolving]
  - Dysgeusia [Not Recovered/Not Resolved]

NARRATIVE: CASE EVENT DATE: 201406
